FAERS Safety Report 17096120 (Version 3)
Quarter: 2021Q2

REPORT INFORMATION
  Report Type: Report from Study
  Country: US (occurrence: US)
  Receive Date: 20191202
  Receipt Date: 20210421
  Transmission Date: 20210716
  Serious: Yes (Other)
  Sender: FDA-Public Use
  Company Number: NVSC2019US054111

PATIENT
  Sex: Male

DRUGS (2)
  1. ILARIS [Suspect]
     Active Substance: CANAKINUMAB
     Indication: JUVENILE IDIOPATHIC ARTHRITIS
     Dosage: 100 MG EVERY 8 WEEKS
     Route: 058
     Dates: start: 20180405, end: 20200616
  2. ILARIS [Suspect]
     Active Substance: CANAKINUMAB
     Dosage: 100 MG
     Route: 058
     Dates: start: 20190927

REACTIONS (2)
  - Juvenile idiopathic arthritis [Unknown]
  - Incorrect dose administered [Unknown]
